FAERS Safety Report 13936984 (Version 1)
Quarter: 2017Q3

REPORT INFORMATION
  Report Type: Spontaneous
  Country: KR (occurrence: KR)
  Receive Date: 20170905
  Receipt Date: 20170905
  Transmission Date: 20171127
  Serious: Yes (Other)
  Sender: FDA-Public Use
  Company Number: KR-BAYER-2017-163861

PATIENT
  Age: 63 Year
  Sex: Female

DRUGS (2)
  1. INTERFERON BETA - 1B [Suspect]
     Active Substance: INTERFERON BETA-1B
     Indication: NEUROMYELITIS OPTICA SPECTRUM DISORDER
     Dosage: UNK UNK, QOD
     Route: 058
  2. INTERFERON BETA - 1B [Suspect]
     Active Substance: INTERFERON BETA-1B
     Indication: MULTIPLE SCLEROSIS

REACTIONS (3)
  - Pancytopenia [None]
  - Hepatic function abnormal [None]
  - Rash [None]
